FAERS Safety Report 11745913 (Version 1)
Quarter: 2015Q4

REPORT INFORMATION
  Report Type: Spontaneous
  Country: US (occurrence: None)
  Receive Date: 20151116
  Receipt Date: 20151116
  Transmission Date: 20160304
  Serious: Yes (Other)
  Sender: FDA-Public Use
  Company Number: None

PATIENT
  Age: 61 Year
  Sex: Female
  Weight: 58.51 kg

DRUGS (2)
  1. ADVIL [Concomitant]
     Active Substance: IBUPROFEN
  2. VAGIFEM [Suspect]
     Active Substance: ESTRADIOL

REACTIONS (4)
  - Bedridden [None]
  - Vaginal laceration [None]
  - Medical device complication [None]
  - Cystitis [None]

NARRATIVE: CASE EVENT DATE: 20151113
